FAERS Safety Report 4897026-0 (Version None)
Quarter: 2005Q4

REPORT INFORMATION
  Report Type: 
  Country: None (occurrence: None)
  Receive Date: 20051228
  Receipt Date: 20041025
  Transmission Date: 20060501
  Serious: Yes (Hospitalization)
  Sender: FDA-Public Use
  Company Number: USA041082073

PATIENT
  Age: 85 Year
  Sex: Female

DRUGS (1)
  1. HUMULIN 50/50 [Suspect]

REACTIONS (1)
  - BLOOD GLUCOSE DECREASED [None]
